FAERS Safety Report 9062570 (Version 1)
Quarter: 2013Q1

REPORT INFORMATION
  Report Type: Spontaneous
  Country: US (occurrence: US)
  Receive Date: 20130213
  Receipt Date: 20130213
  Transmission Date: 20140127
  Serious: No
  Sender: FDA-Public Use
  Company Number: US-009507513-1302USA003612

PATIENT
  Sex: Female

DRUGS (3)
  1. REMERON SOLTAB [Suspect]
     Indication: DEPRESSION
     Dosage: UNK
     Route: 048
     Dates: start: 2011
  2. REMERON SOLTAB [Interacting]
     Indication: INSOMNIA
  3. VIVACTIL [Interacting]
     Indication: MIGRAINE

REACTIONS (3)
  - Drug ineffective [Unknown]
  - Drug interaction [Unknown]
  - Therapeutic response unexpected [Unknown]
